FAERS Safety Report 6480279-5 (Version None)
Quarter: 2009Q4

REPORT INFORMATION
  Report Type: 
  Country: None (occurrence: None)
  Receive Date: 20091202
  Receipt Date: 20091116
  Transmission Date: 20100525
  Serious: Yes (Other)
  Sender: FDA-Public Use
  Company Number: 8054610

PATIENT
  Age: 9 Year
  Sex: Female
  Weight: 36.2 kg

DRUGS (3)
  1. KEPPRA [Suspect]
     Indication: CONVULSION
     Dosage: 2/D PO
     Route: 048
     Dates: start: 20081201, end: 20090101
  2. KEPPRA XR [Suspect]
     Indication: CONVULSION
     Dosage: 250 MG /D PO
     Route: 048
     Dates: start: 20090601, end: 20090912
  3. KEPPRA XR [Suspect]
     Indication: CONVULSION
     Dosage: 500 MG /D PO
     Route: 048
     Dates: start: 20090912, end: 20091109

REACTIONS (4)
  - CONVULSION [None]
  - CYSTITIS [None]
  - DEPRESSED MOOD [None]
  - H1N1 INFLUENZA [None]
